FAERS Safety Report 18242677 (Version 1)
Quarter: 2020Q3

REPORT INFORMATION
  Report Type: Spontaneous
  Country: FR (occurrence: FR)
  Receive Date: 20200908
  Receipt Date: 20200908
  Transmission Date: 20201103
  Serious: Yes (Other)
  Sender: FDA-Public Use
  Company Number: FR-TEVA-2020-FR-1823620

PATIENT
  Age: 84 Year
  Sex: Male
  Weight: 72 kg

DRUGS (12)
  1. VANCOMYCINE [Suspect]
     Active Substance: VANCOMYCIN
     Indication: ENDOCARDITIS
     Dosage: 1400 MG
     Route: 041
     Dates: start: 20200705, end: 20200713
  2. GRANUDOXY 100 MG, COMPRIME PELLICULE SECABLE [Suspect]
     Active Substance: DOXYCYCLINE
     Indication: ENDOCARDITIS
     Dosage: 2 DOSAGE FORMS
     Route: 048
     Dates: start: 20200712, end: 20200714
  3. ROCEPHINE 1 G, POUDRE POUR SOLUTION INJECTABLE [Suspect]
     Active Substance: CEFTRIAXONE SODIUM
     Indication: URINARY TRACT INFECTION
     Dosage: 1 DOSAGE FORMS
     Route: 041
     Dates: start: 20200710, end: 20200714
  4. XENETIX 300 (300 MG D^IODE/ML), SOLUTION INJECTABLE [Concomitant]
     Active Substance: IOBITRIDOL
     Indication: COMPUTERISED TOMOGRAM
     Dosage: 47 ML
     Route: 041
     Dates: start: 20200711, end: 20200711
  5. LANSOPRAZOLE. [Suspect]
     Active Substance: LANSOPRAZOLE
     Indication: GASTRITIS PROPHYLAXIS
     Dosage: 15 MG
     Route: 048
     Dates: end: 20200718
  6. FUROSEMIDE. [Suspect]
     Active Substance: FUROSEMIDE
     Indication: CARDIAC FAILURE
     Dosage: 125MG
     Route: 041
     Dates: start: 20200629, end: 20200720
  7. ZYLORIC 100 MG, COMPRIME [Suspect]
     Active Substance: ALLOPURINOL
     Indication: PROPHYLAXIS
     Dosage: 1 DOSAGE FORMS
     Route: 048
     Dates: end: 20200711
  8. KARDEGIC [Concomitant]
     Active Substance: ASPIRIN DL-LYSINE
     Indication: CARDIOVASCULAR EVENT PROPHYLAXIS
     Dosage: 1 DOSAGE FORMS,
     Route: 048
  9. RIFADINE 300 MG, GELULE [Concomitant]
     Active Substance: RIFAMPIN
     Indication: ENDOCARDITIS
     Dosage: 1200 MG
     Route: 048
     Dates: start: 20200626, end: 20200806
  10. PLAVIX [Concomitant]
     Active Substance: CLOPIDOGREL BISULFATE
     Indication: CARDIOVASCULAR EVENT PROPHYLAXIS
     Dosage: 1 DOSAGE FORMS
     Route: 048
  11. KEPPRA [Suspect]
     Active Substance: LEVETIRACETAM
     Indication: PARTIAL SEIZURES
     Dosage: 2 DOSAGE FORMS
     Route: 048
     Dates: start: 20200711, end: 20200722
  12. AMLOR 5 MG, GELULE [Concomitant]
     Active Substance: AMLODIPINE BESYLATE
     Indication: HYPERTENSION
     Dosage: 1 DOSAGE FORMS
     Route: 048
     Dates: end: 20200718

REACTIONS (4)
  - Rash maculo-papular [Recovered/Resolved]
  - Agranulocytosis [Recovered/Resolved]
  - Thrombocytopenia [Recovering/Resolving]
  - Neutropenia [Recovered/Resolved]

NARRATIVE: CASE EVENT DATE: 20200713
